FAERS Safety Report 8820351 (Version 2)
Quarter: 2012Q4

REPORT INFORMATION
  Report Type: Report from Study
  Country: JP (occurrence: JP)
  Receive Date: 20121002
  Receipt Date: 20121115
  Transmission Date: 20130627
  Serious: Yes (Hospitalization)
  Sender: FDA-Public Use
  Company Number: JP-009507513-2012SP028027

PATIENT
  Age: 47 Year
  Sex: Male
  Weight: 91 kg

DRUGS (9)
  1. PEGINTRON [Suspect]
     Indication: HEPATITIS C
     Dosage: 1.5 Microgram per kilogram, qw
     Route: 058
     Dates: start: 20120424, end: 20120507
  2. REBETOL [Suspect]
     Indication: HEPATITIS C
     Dosage: 1000 mg, QD
     Route: 048
     Dates: start: 20120424, end: 20120510
  3. TELAVIC [Suspect]
     Indication: HEPATITIS C
     Dosage: 2250 mg, QD
     Route: 048
     Dates: start: 20120424, end: 20120510
  4. MERCAZOLE [Concomitant]
     Indication: HYPERTHYROIDISM
     Dosage: 5 mg, qd
     Route: 048
  5. JUZEN-TAIHO-TO [Concomitant]
     Indication: PROPHYLAXIS
     Dosage: 7.5 g, qd
     Route: 048
     Dates: start: 20120424, end: 20120510
  6. LOXONIN [Concomitant]
     Indication: PROPHYLAXIS
     Dosage: 180 mg, qd
     Route: 048
     Dates: start: 20120424, end: 20120510
  7. MUCOSTA [Concomitant]
     Indication: PROPHYLAXIS
     Dosage: 300 mg, qd
     Route: 048
     Dates: start: 20120424, end: 20120510
  8. TAKEPRON [Concomitant]
     Indication: PROPHYLAXIS
     Dosage: 15 mg, qd
     Route: 048
     Dates: start: 20120424, end: 20120510
  9. FEBURIC [Concomitant]
     Dosage: UPDATE (29MAY2012)
     Route: 048
     Dates: start: 20120507, end: 20120510

REACTIONS (2)
  - Malaise [Recovered/Resolved]
  - Decreased appetite [Recovered/Resolved]
